FAERS Safety Report 6077801-X (Version None)
Quarter: 2009Q1

REPORT INFORMATION
  Report Type: 
  Country: None (occurrence: None)
  Receive Date: 20090213
  Receipt Date: 20090202
  Transmission Date: 20090719
  Serious: Yes (Other)
  Sender: FDA-Public Use
  Company Number: CH-PFIZER INC-2009164484

PATIENT

DRUGS (1)
  1. VFEND [Suspect]
     Indication: CANDIDIASIS
     Dosage: UNK
     Dates: start: 20080612, end: 20080704

REACTIONS (1)
  - PSYCHOTIC DISORDER [None]
